FAERS Safety Report 4415999-7 (Version None)
Quarter: 2004Q3

REPORT INFORMATION
  Report Type: 
  Country: None (occurrence: None)
  Receive Date: 20040802
  Receipt Date: 20040722
  Transmission Date: 20050211
  Serious: Yes (Hospitalization)
  Sender: FDA-Public Use
  Company Number: 04H-083-0267798-00

PATIENT
  Age: 64 Year
  Sex: Female

DRUGS (5)
  1. VANCOMYCIN HYDROCHLORIDE [Suspect]
     Indication: SURGERY
     Dosage: 200 ML/H Q DAY, INTRAVENOUS
     Route: 042
     Dates: start: 20040629, end: 20040629
  2. SIMVASTATIN [Concomitant]
  3. HEPARIN-FRACTION, CALCIUM SALT [Concomitant]
  4. ATENOLOL [Concomitant]
  5. OMEPRAZOLE [Concomitant]

REACTIONS (11)
  - ASTHMA [None]
  - CARDIAC DISORDER [None]
  - DRUG HYPERSENSITIVITY [None]
  - DYSGEUSIA [None]
  - HYPOTENSION [None]
  - MUSCLE TWITCHING [None]
  - PARAESTHESIA ORAL [None]
  - PRURITUS [None]
  - RASH [None]
  - RESPIRATORY DISORDER [None]
  - RHINITIS [None]
